FAERS Safety Report 7521804-2 (Version None)
Quarter: 2011Q2

REPORT INFORMATION
  Report Type: 
  Country: None (occurrence: None)
  Receive Date: 20110603
  Receipt Date: 20090108
  Transmission Date: 20111010
  Serious: Yes (Other)
  Sender: FDA-Public Use
  Company Number: US-BAYER-200910069NA

PATIENT
  Sex: Female
  Weight: 53.288 kg

DRUGS (21)
  1. DIGOXIN [Concomitant]
     Dosage: 250 MCG/24HR, UNK
     Route: 048
  2. NOREPINEPHRINE BITARTRATE [Concomitant]
     Dosage: UNK
     Route: 042
     Dates: start: 20031009, end: 20031009
  3. PLATELETS [Concomitant]
     Dosage: 12 PACKS
     Dates: start: 20031009
  4. EPINEPHRINE [Concomitant]
     Dosage: UNK
     Route: 042
     Dates: start: 20031009, end: 20031009
  5. TRASYLOL [Suspect]
     Indication: MITRAL VALVE REPLACEMENT
  6. METOPROLOL TARTRATE [Concomitant]
     Dosage: 100 MG, BID
     Route: 048
  7. RED BLOOD CELLS [Concomitant]
     Dosage: 7 U, UNK
     Route: 042
     Dates: start: 20031009
  8. FUROSEMIDE [Concomitant]
     Dosage: 20 MG, QD
     Route: 048
  9. ALLOPURINOL [Concomitant]
     Dosage: 300 MG, QD
     Route: 048
  10. PROTAMINE SULFATE [Concomitant]
     Dosage: 320 MG, UNK
     Route: 042
     Dates: start: 20031009, end: 20031009
  11. CEFAZOLIN [Concomitant]
     Dosage: UNK
     Route: 042
     Dates: start: 20031009, end: 20031009
  12. DOPAMINE HCL [Concomitant]
     Dosage: UNK
     Route: 042
     Dates: start: 20031009
  13. TRASYLOL [Suspect]
     Indication: CARDIAC OPERATION
     Dosage: 200 ML PRIME
     Route: 042
     Dates: start: 20031009, end: 20031009
  14. ZOCOR [Concomitant]
     Dosage: 20 MG, QD
     Route: 048
  15. NITROGLYCERIN [Concomitant]
     Indication: SURGERY
     Dosage: UNK
     Route: 042
     Dates: start: 20031009
  16. MILRINONE [Concomitant]
     Dosage: UNK
     Route: 042
     Dates: start: 20031009, end: 20031018
  17. FRESH FROZEN PLASMA [Concomitant]
     Dosage: 4 U, UNK
     Route: 042
     Dates: start: 20031009
  18. TRASYLOL [Suspect]
     Indication: CARDIOPULMONARY BYPASS
     Dosage: 50CC/HR
     Route: 042
     Dates: start: 20031009, end: 20031009
  19. ENALAPRIL MALEATE [Concomitant]
     Dosage: 20 MG, QD
     Route: 048
  20. WARFARIN SODIUM [Concomitant]
     Dosage: 5MG AS ADJUSTED PER PATIENT'S INTERNATIONAL NORMALIZED RATIO
     Route: 048
  21. HEPARIN [Concomitant]
     Dosage: 24,000 UNITS
     Route: 042
     Dates: start: 20031009, end: 20031009

REACTIONS (4)
  - RENAL FAILURE [None]
  - PAIN [None]
  - UNEVALUABLE EVENT [None]
  - INJURY [None]
